FAERS Safety Report 17435619 (Version 1)
Quarter: 2020Q1

REPORT INFORMATION
  Report Type: Spontaneous
  Country: US (occurrence: US)
  Receive Date: 20200204
  Receipt Date: 20200204
  Transmission Date: 20200409
  Serious: Yes (Hospitalization)
  Sender: FDA-Public Use
  Company Number: None

PATIENT
  Sex: Female

DRUGS (23)
  1. HYDROCO/APAP [Concomitant]
     Active Substance: ACETAMINOPHEN\HYDROCODONE
  2. METHYLPRED [Concomitant]
     Active Substance: METHYLPREDNISOLONE
  3. ONDANSETRON [Concomitant]
     Active Substance: ONDANSETRON
  4. TIZANIDINE. [Concomitant]
     Active Substance: TIZANIDINE
  5. TRAZODONE [Concomitant]
     Active Substance: TRAZODONE HYDROCHLORIDE
  6. ALPHA LIPOIC [Concomitant]
  7. AZITHROMYCIN ANHYDROUS. [Concomitant]
     Active Substance: AZITHROMYCIN ANHYDROUS
  8. CLOPIDOGREL [Concomitant]
     Active Substance: CLOPIDOGREL BISULFATE
  9. FASLODEX [Concomitant]
     Active Substance: FULVESTRANT
  10. GABAPENTIN. [Concomitant]
     Active Substance: GABAPENTIN
  11. GEMFIBROZIL. [Concomitant]
     Active Substance: GEMFIBROZIL
  12. METOPROL TAR [Concomitant]
  13. RANOLAZINE. [Concomitant]
     Active Substance: RANOLAZINE
  14. VERZENIO [Suspect]
     Active Substance: ABEMACICLIB
     Indication: BREAST CANCER FEMALE
     Route: 048
     Dates: start: 20190723
  15. CITALOPRAM [Concomitant]
     Active Substance: CITALOPRAM HYDROBROMIDE
  16. MELOXICAM. [Concomitant]
     Active Substance: MELOXICAM
  17. NITROGLYCERN [Concomitant]
  18. ANASTROZOLE. [Concomitant]
     Active Substance: ANASTROZOLE
  19. METOPROL SUC [Concomitant]
  20. ISOSORB MONO [Concomitant]
     Active Substance: ISOSORBIDE MONONITRATE
  21. LACTULOSE. [Concomitant]
     Active Substance: LACTULOSE
  22. PLAVIX [Concomitant]
     Active Substance: CLOPIDOGREL BISULFATE
  23. ZOFRAN [Concomitant]
     Active Substance: ONDANSETRON HYDROCHLORIDE

REACTIONS (1)
  - Sepsis [None]
